FAERS Safety Report 7306797-5 (Version None)
Quarter: 2011Q1

REPORT INFORMATION
  Report Type: 
  Country: None (occurrence: None)
  Receive Date: 20110223
  Receipt Date: 20110217
  Transmission Date: 20110831
  Serious: Yes (Life-Threatening, Hospitalization, Other)
  Sender: FDA-Public Use
  Company Number: CZ-BAYER-2011-015422

PATIENT
  Sex: Male

DRUGS (1)
  1. ULTRAVIST 150 [Suspect]
     Indication: COMPUTERISED TOMOGRAM
     Dosage: 1 DF, UNK
     Route: 040
     Dates: start: 20110214, end: 20110214

REACTIONS (4)
  - RESPIRATORY TRACT OEDEMA [None]
  - FACE OEDEMA [None]
  - FLUSHING [None]
  - ERYTHEMA [None]
